FAERS Safety Report 12187402 (Version 1)
Quarter: 2016Q1

REPORT INFORMATION
  Report Type: Spontaneous
  Country: US (occurrence: None)
  Receive Date: 20160316
  Receipt Date: 20160316
  Transmission Date: 20160526
  Serious: No
  Sender: FDA-Public Use
  Company Number: None

PATIENT
  Age: 53 Year
  Sex: Female
  Weight: 42.64 kg

DRUGS (1)
  1. CIPROFLOXACIN 500MG HCL [Suspect]
     Active Substance: CIPROFLOXACIN HYDROCHLORIDE
     Indication: URINARY TRACT INFECTION
     Dosage: 500MG 14 PILLS EVERY 12 HR/2 TIMES A DAY) TWO
     Dates: start: 20160212, end: 20160214

REACTIONS (3)
  - Hypoaesthesia [None]
  - Paraesthesia [None]
  - Feeling abnormal [None]

NARRATIVE: CASE EVENT DATE: 20160214
